FAERS Safety Report 8383679 (Version 5)
Quarter: 2012Q4

REPORT INFORMATION
  Report Type: 
  Country: US (occurrence: US)
  Receive Date: 20120201
  Receipt Date: 20121017
  Transmission Date: 20130627
  Serious: Yes (Other)
  Sender: FDA-Public Use
  Company Number: US-PFIZER INC-2012026946

PATIENT
  Age: 63 Year
  Sex: Female
  Weight: 78 kg

DRUGS (19)
  1. CHANTIX [Suspect]
     Indication: SMOKING CESSATION THERAPY
     Dosage: UNK
     Route: 048
  2. CHANTIX [Suspect]
     Dosage: 0.5 mg, 1x/day
     Route: 048
     Dates: start: 2011, end: 2011
  3. CHANTIX [Suspect]
     Dosage: 0.5 mg, daily
     Route: 048
     Dates: start: 20120306, end: 201203
  4. CHANTIX [Suspect]
     Dosage: UNK
     Route: 048
     Dates: start: 201203
  5. CHANTIX [Suspect]
     Dosage: 1 mg, 2x/day (continuing month pack)
     Route: 048
     Dates: start: 20120829
  6. CHANTIX [Suspect]
     Dosage: 0.5 mg, (starting month pack 0.5 mg X 11 + 1 mg x 42 oral tablet), take as directed
     Route: 048
     Dates: start: 20120830
  7. CRESTOR [Concomitant]
     Indication: BLOOD CHOLESTEROL INCREASED
     Dosage: 10 mg, UNK
  8. FEMARA [Concomitant]
     Indication: BREAST CANCER
     Dosage: 2.5 mg, UNK
     Dates: start: 2002
  9. FEMARA [Concomitant]
     Indication: LYMPHOMA
  10. FEMARA [Concomitant]
     Indication: CERVIX CARCINOMA
  11. METFORMIN HYDROCHLORIDE [Concomitant]
     Indication: DIABETES MELLITUS
     Dosage: 500 mg, UNK
  12. VITAMIN D [Concomitant]
     Dosage: 1000 IU, 1x/day
     Route: 048
     Dates: start: 20120109
  13. ALPRAZOLAM [Concomitant]
     Indication: ANXIETY
     Dosage: 0.5 mg, 2x/day if needed
     Route: 048
     Dates: start: 20090910
  14. GLIMEPIRIDE [Concomitant]
     Dosage: 4 mg, 2x/day (take one tablet before breakfast and before supper)
     Route: 048
     Dates: start: 20120615
  15. LEVOTHYROXINE SODIUM [Concomitant]
     Dosage: 175 ug, 1x/day (1 tablet daily)
     Route: 048
     Dates: start: 20081007
  16. LISINOPRIL [Concomitant]
     Dosage: 40 mg, 1x/day (take 1 tablet daily)
     Route: 048
     Dates: start: 20100201
  17. ONGLYZA [Concomitant]
     Dosage: 5 mg, 1x/day
     Route: 048
     Dates: start: 20120816
  18. SYMBICORT [Concomitant]
     Dosage: UNK, 80-4.5 mcg/act inhalation aerosol, inhale 2 puffs daily
     Route: 055
     Dates: start: 20120223
  19. ZOLPIDEM TARTRATE [Concomitant]
     Dosage: 10 mg, 1x/day (1 tablet daily at bedtime)
     Route: 048
     Dates: start: 20091218

REACTIONS (8)
  - Tendon rupture [Recovering/Resolving]
  - Sleep disorder [Unknown]
  - Agitation [Not Recovered/Not Resolved]
  - Pain [Recovering/Resolving]
  - Eructation [Unknown]
  - Irritability [Not Recovered/Not Resolved]
  - Anxiety [Not Recovered/Not Resolved]
  - Dizziness [Unknown]
